FAERS Safety Report 17690896 (Version 2)
Quarter: 2020Q2

REPORT INFORMATION
  Report Type: Report from Study
  Country: US (occurrence: US)
  Receive Date: 20200422
  Receipt Date: 20200427
  Transmission Date: 20200714
  Serious: Yes (Hospitalization)
  Sender: FDA-Public Use
  Company Number: US-ROCHE-2585360

PATIENT
  Sex: Female

DRUGS (2)
  1. OCREVUS [Suspect]
     Active Substance: OCRELIZUMAB
     Indication: MULTIPLE SCLEROSIS
     Dosage: ON 21/AUG/2018, 04/SEP/2018, 02/APR/2019, 02/OCT/2019 AND 18/MAR/2020, SHE RECEIVED OCRELIZUMAB INFU
     Route: 042
     Dates: start: 20180821
  2. OCREVUS [Suspect]
     Active Substance: OCRELIZUMAB
     Indication: RELAPSING-REMITTING MULTIPLE SCLEROSIS

REACTIONS (5)
  - Furuncle [Recovering/Resolving]
  - Somnolence [Recovered/Resolved]
  - Hepatic enzyme abnormal [Recovered/Resolved]
  - Trigeminal neuralgia [Recovering/Resolving]
  - Herpes zoster [Recovered/Resolved]
